FAERS Safety Report 8235887-8 (Version None)
Quarter: 2012Q1

REPORT INFORMATION
  Report Type: 
  Country: None (occurrence: None)
  Receive Date: 20120326
  Receipt Date: 20120323
  Transmission Date: 20120608
  Serious: No
  Sender: FDA-Public Use
  Company Number: US-PFIZER INC-2012055831

PATIENT
  Sex: Female
  Weight: 79.4 kg

DRUGS (7)
  1. CHANTIX [Suspect]
     Indication: SMOKING CESSATION THERAPY
     Dosage: UNK
     Route: 048
  2. IBUPROFEN (ADVIL) [Concomitant]
     Indication: SINUS HEADACHE
     Dosage: UNK
  3. BENADRYL [Concomitant]
     Indication: SINUS DISORDER
     Dosage: UNK
  4. BENADRYL [Concomitant]
     Indication: SINUSITIS
  5. CHANTIX [Suspect]
     Dosage: 1 MG, 2X/DAY
     Route: 048
  6. BENADRYL [Concomitant]
     Indication: SLEEP DISORDER
  7. CHANTIX [Suspect]
     Dosage: 0.5 MG, 1X/DAY
     Route: 048
     Dates: start: 20120221

REACTIONS (7)
  - MALAISE [None]
  - MOOD ALTERED [None]
  - STRESS [None]
  - FLATULENCE [None]
  - FEELING ABNORMAL [None]
  - ABNORMAL DREAMS [None]
  - DIARRHOEA [None]
